FAERS Safety Report 16079437 (Version 1)
Quarter: 2019Q1

REPORT INFORMATION
  Report Type: Report from Study
  Country: IT (occurrence: IT)
  Receive Date: 20190315
  Receipt Date: 20190315
  Transmission Date: 20190418
  Serious: Yes (Other)
  Sender: FDA-Public Use
  Company Number: IT-BIOGEN-2019BI00709109

PATIENT
  Age: 13 Year
  Sex: Female

DRUGS (2)
  1. XARENEL [Concomitant]
     Indication: VITAMIN D DEFICIENCY
     Dosage: 25 KU CYCLICAL
     Route: 048
  2. TYSABRI [Suspect]
     Active Substance: NATALIZUMAB
     Indication: RELAPSING-REMITTING MULTIPLE SCLEROSIS
     Route: 042
     Dates: start: 20180301, end: 20190227

REACTIONS (4)
  - Vomiting [Unknown]
  - Off label use [Recovered/Resolved]
  - Neutropenia [Unknown]
  - Influenza [Unknown]

NARRATIVE: CASE EVENT DATE: 20180301
